FAERS Safety Report 23013385 (Version 3)
Quarter: 2024Q1

REPORT INFORMATION
  Report Type: Spontaneous
  Country: US (occurrence: US)
  Receive Date: 20230930
  Receipt Date: 20240131
  Transmission Date: 20240410
  Serious: No
  Sender: FDA-Public Use
  Company Number: US-SA-2023SA293722

PATIENT
  Age: 24 Year
  Sex: Female

DRUGS (1)
  1. CEREZYME [Suspect]
     Active Substance: IMIGLUCERASE
     Indication: Gaucher^s disease
     Dosage: 3200 U, QOW
     Route: 042
     Dates: start: 201801

REACTIONS (3)
  - Weight decreased [Unknown]
  - Maternal exposure during pregnancy [Unknown]
  - Intra-uterine contraceptive device removal [Unknown]

NARRATIVE: CASE EVENT DATE: 20230101
